FAERS Safety Report 15327789 (Version 1)
Quarter: 2018Q3

REPORT INFORMATION
  Report Type: Spontaneous
  Country: US (occurrence: US)
  Receive Date: 20180828
  Receipt Date: 20180828
  Transmission Date: 20181010
  Serious: No
  Sender: FDA-Public Use
  Company Number: US-ROCHE-2130680

PATIENT
  Sex: Male
  Weight: 127.12 kg

DRUGS (4)
  1. PRILOSEC [Concomitant]
     Active Substance: OMEPRAZOLE MAGNESIUM
     Dosage: ONGOING:UNKNOWN
     Route: 048
     Dates: start: 20180208
  2. ALECENSA [Suspect]
     Active Substance: ALECTINIB HYDROCHLORIDE
     Indication: PRODUCT USED FOR UNKNOWN INDICATION
     Dosage: 4 CAPSULE,ONGOING:YES
     Route: 048
     Dates: start: 20180213
  3. LASIX [Concomitant]
     Active Substance: FUROSEMIDE
     Dosage: ONGOING:UNKNWON
     Route: 048
     Dates: start: 20180208
  4. XALKORI [Concomitant]
     Active Substance: CRIZOTINIB
     Dosage: ONGOING:UNKNOWN
     Route: 048
     Dates: start: 20180208

REACTIONS (3)
  - Weight decreased [Not Recovered/Not Resolved]
  - Off label use [Unknown]
  - Intentional product use issue [Unknown]
